FAERS Safety Report 6887737-X (Version None)
Quarter: 2010Q3

REPORT INFORMATION
  Report Type: 
  Country: None (occurrence: None)
  Receive Date: 20100730
  Receipt Date: 20100730
  Transmission Date: 20110219
  Serious: Yes (Hospitalization)
  Sender: FDA-Public Use
  Company Number: CN-ROCHE-715796

PATIENT
  Age: 69 Year
  Sex: Male

DRUGS (2)
  1. XELODA [Suspect]
     Indication: RECTAL CANCER
     Route: 048
     Dates: start: 20100301, end: 20100720
  2. OXALIPLATIN [Concomitant]
     Indication: RECTAL CANCER
     Dates: start: 20100301, end: 20100720

REACTIONS (1)
  - PSORIASIS [None]
